FAERS Safety Report 18855414 (Version 1)
Quarter: 2021Q1

REPORT INFORMATION
  Report Type: Spontaneous
  Country: CA (occurrence: CA)
  Receive Date: 20210206
  Receipt Date: 20210206
  Transmission Date: 20210420
  Serious: Yes (Other)
  Sender: FDA-Public Use
  Company Number: CA-TEVA-2021-CA-1875662

PATIENT
  Sex: Female
  Weight: 81 kg

DRUGS (21)
  1. ORENCIA [Suspect]
     Active Substance: ABATACEPT
     Indication: PRODUCT USED FOR UNKNOWN INDICATION
     Route: 042
  2. SIMPONI [Suspect]
     Active Substance: GOLIMUMAB
     Indication: PRODUCT USED FOR UNKNOWN INDICATION
     Route: 058
  3. COENZYME Q10 [Concomitant]
     Active Substance: DIETARY SUPPLEMENT\UBIDECARENONE
  4. HYDROCHLOROQUINE [Concomitant]
     Active Substance: HYDROXYCHLOROQUINE SULFATE
  5. ARAVA [Suspect]
     Active Substance: LEFLUNOMIDE
     Indication: PRODUCT USED FOR UNKNOWN INDICATION
     Route: 065
  6. ENBREL [Suspect]
     Active Substance: ETANERCEPT
     Indication: RHEUMATOID ARTHRITIS
     Route: 058
  7. EPA?DHA [Concomitant]
  8. METHOTREXATE. [Suspect]
     Active Substance: METHOTREXATE
     Indication: PRODUCT USED FOR UNKNOWN INDICATION
     Route: 065
  9. CIMZIA [Suspect]
     Active Substance: CERTOLIZUMAB PEGOL
     Indication: RHEUMATOID ARTHRITIS
     Route: 058
  10. PANTOPRAZOLE [Concomitant]
     Active Substance: PANTOPRAZOLE
  11. PERCOCET [Suspect]
     Active Substance: ACETAMINOPHEN\OXYCODONE HYDROCHLORIDE
     Indication: PRODUCT USED FOR UNKNOWN INDICATION
     Route: 065
  12. PREDNISONE. [Concomitant]
     Active Substance: PREDNISONE
  13. ACTEMRA [Suspect]
     Active Substance: TOCILIZUMAB
     Indication: PRODUCT USED FOR UNKNOWN INDICATION
     Route: 065
  14. CIMZIA [Suspect]
     Active Substance: CERTOLIZUMAB PEGOL
     Route: 058
  15. IBUPROFEN. [Concomitant]
     Active Substance: IBUPROFEN
  16. CHLORAPREP ONE?STEP [Suspect]
     Active Substance: CHLORHEXIDINE GLUCONATE\ISOPROPYL ALCOHOL
     Indication: PRODUCT USED FOR UNKNOWN INDICATION
     Route: 061
  17. APO?ZOPICLONE [Concomitant]
     Active Substance: ZOPICLONE
  18. CETIRIZINE [Concomitant]
     Active Substance: CETIRIZINE HYDROCHLORIDE
  19. VITAMIN C [Concomitant]
     Active Substance: ASCORBIC ACID
  20. TYLENOL [Concomitant]
     Active Substance: ACETAMINOPHEN
  21. VENTOLIN [Concomitant]
     Active Substance: ALBUTEROL SULFATE

REACTIONS (21)
  - Asthenia [Unknown]
  - Headache [Unknown]
  - Respiratory disorder [Unknown]
  - Urticaria [Unknown]
  - Off label use [Unknown]
  - Diarrhoea [Unknown]
  - Ear pain [Unknown]
  - Muscle spasticity [Unknown]
  - Lower respiratory tract infection [Unknown]
  - Night sweats [Unknown]
  - Vomiting [Unknown]
  - Back pain [Unknown]
  - Pruritus [Unknown]
  - Abdominal pain [Unknown]
  - Insomnia [Unknown]
  - Joint swelling [Unknown]
  - Pain [Unknown]
  - Rash [Unknown]
  - Sinusitis [Unknown]
  - Body temperature increased [Unknown]
  - Peripheral swelling [Unknown]
